FAERS Safety Report 19412655 (Version 1)
Quarter: 2021Q2

REPORT INFORMATION
  Report Type: Spontaneous
  Country: CA (occurrence: CA)
  Receive Date: 20210614
  Receipt Date: 20210614
  Transmission Date: 20210717
  Serious: Yes (Other)
  Sender: FDA-Public Use
  Company Number: CA-ACCORD-228316

PATIENT
  Age: 6 Decade
  Sex: Male

DRUGS (2)
  1. PACLITAXEL/PACLITAXEL LIPOSOME [Suspect]
     Active Substance: PACLITAXEL
     Indication: ANAPLASTIC LYMPHOMA KINASE GENE MUTATION
     Dosage: LIQUID INTRAVENOUS
  2. CARBOPLATIN. [Suspect]
     Active Substance: CARBOPLATIN
     Indication: ANAPLASTIC LYMPHOMA KINASE GENE MUTATION
     Dosage: SOLUTION INTRAVENOUS
     Route: 065

REACTIONS (2)
  - Neoplasm progression [Unknown]
  - Hepatitis B [Unknown]
